FAERS Safety Report 5855383-2 (Version None)
Quarter: 2008Q3

REPORT INFORMATION
  Report Type: 
  Country: None (occurrence: None)
  Receive Date: 20080821
  Receipt Date: 20080818
  Transmission Date: 20090109
  Serious: Yes (Other)
  Sender: FDA-Public Use
  Company Number: S08-USA-02321-01

PATIENT
  Age: 20 Year
  Sex: Male
  Weight: 64.4108 kg

DRUGS (3)
  1. LEXAPRO [Suspect]
     Indication: ANXIETY
     Dosage: 20 MG (10 MG, 2 IN 1 D), ORAL
     Route: 048
     Dates: start: 20071001, end: 20080704
  2. LEXAPRO [Suspect]
     Indication: DEPRESSION
     Dosage: 20 MG (10 MG, 2 IN 1 D), ORAL
     Route: 048
     Dates: start: 20071001, end: 20080704
  3. XANAX (0.25 MILLIGRAM, TABLETS) [Concomitant]

REACTIONS (3)
  - CONVULSION [None]
  - INAPPROPRIATE SCHEDULE OF DRUG ADMINISTRATION [None]
  - PYREXIA [None]
